FAERS Safety Report 8553866-8 (Version None)
Quarter: 2012Q3

REPORT INFORMATION
  Report Type: 
  Country: None (occurrence: None)
  Receive Date: 20120731
  Receipt Date: 20120718
  Transmission Date: 20120928
  Serious: Yes (Hospitalization, Other)
  Sender: FDA-Public Use
  Company Number: US-009507513-2012SP036952

PATIENT

DRUGS (4)
  1. REBETOL [Suspect]
     Indication: HEPATITIS C
     Dosage: UNK
     Dates: start: 20120101, end: 20120601
  2. REBETOL [Suspect]
     Dosage: UNK
     Dates: start: 20120630, end: 20120717
  3. PEG-INTRON [Suspect]
     Indication: HEPATITIS C
     Dosage: UNK
     Dates: start: 20120101, end: 20120601
  4. PEG-INTRON [Suspect]
     Dosage: UNK
     Dates: start: 20120630, end: 20120717

REACTIONS (3)
  - DYSPNOEA [None]
  - DRUG INEFFECTIVE [None]
  - ANAEMIA [None]
